FAERS Safety Report 23815861 (Version 2)
Quarter: 2024Q2

REPORT INFORMATION
  Report Type: Report from Study
  Country: CA (occurrence: CA)
  Receive Date: 20240503
  Receipt Date: 20240516
  Transmission Date: 20240716
  Serious: Yes (Hospitalization, Other)
  Sender: FDA-Public Use
  Company Number: CA-002147023-NVSC2022CA265276

PATIENT
  Sex: Male
  Weight: 74 kg

DRUGS (2)
  1. PIRFENIDONE [Suspect]
     Active Substance: PIRFENIDONE
     Indication: Interstitial lung disease
     Dosage: UNK
     Route: 048
     Dates: start: 202101
  2. PIRFENIDONE [Suspect]
     Active Substance: PIRFENIDONE
     Indication: Idiopathic pulmonary fibrosis

REACTIONS (4)
  - Hospitalisation [Unknown]
  - Interstitial lung disease [Unknown]
  - Mobility decreased [Unknown]
  - Rash [Unknown]
